FAERS Safety Report 5548295-5 (Version None)
Quarter: 2007Q4

REPORT INFORMATION
  Report Type: 
  Country: None (occurrence: None)
  Receive Date: 20071211
  Receipt Date: 20070402
  Transmission Date: 20080405
  Serious: No
  Sender: FDA-Public Use
  Company Number: US-AMGEN-KDL215017

PATIENT
  Sex: Female
  Weight: 72.6 kg

DRUGS (5)
  1. ENBREL [Suspect]
     Indication: ANKYLOSING SPONDYLITIS
     Route: 058
     Dates: start: 20070223
  2. ANTIBIOTICS [Suspect]
  3. INDOCIN [Concomitant]
  4. NEXIUM [Concomitant]
  5. DEMEROL [Concomitant]

REACTIONS (6)
  - COUGH [None]
  - FATIGUE [None]
  - PHARYNGOLARYNGEAL PAIN [None]
  - RESPIRATORY TRACT CONGESTION [None]
  - SINUS CONGESTION [None]
  - UPPER RESPIRATORY TRACT INFECTION [None]
